FAERS Safety Report 5809168-3 (Version None)
Quarter: 2008Q3

REPORT INFORMATION
  Report Type: 
  Country: None (occurrence: None)
  Receive Date: 20080714
  Receipt Date: 20080704
  Transmission Date: 20090109
  Serious: Yes (Other)
  Sender: FDA-Public Use
  Company Number: CH-ASTRAZENECA-2008PK01476

PATIENT
  Age: 2542 Day
  Sex: Male
  Weight: 25 kg

DRUGS (2)
  1. NOLVADEX [Suspect]
     Route: 048
     Dates: start: 20080630, end: 20080704
  2. CEFUROXIME AXETIL [Concomitant]

REACTIONS (1)
  - MEDICATION ERROR [None]
